FAERS Safety Report 6173975-0 (Version None)
Quarter: 2009Q2

REPORT INFORMATION
  Report Type: 
  Country: None (occurrence: None)
  Receive Date: 20090430
  Receipt Date: 20090424
  Transmission Date: 20091009
  Serious: Yes (Other)
  Sender: FDA-Public Use
  Company Number: FR-WYE-G03581809

PATIENT
  Age: 26 Year
  Sex: Female

DRUGS (3)
  1. EFFEXOR [Suspect]
     Indication: DEPRESSION
     Dosage: 75 MG TOTAL DAILY
     Route: 048
     Dates: end: 20080101
  2. EFFEXOR [Suspect]
     Route: 048
     Dates: start: 20080101
  3. LEVOTHYROX [Concomitant]
     Indication: THYROID NEOPLASM
     Route: 048

REACTIONS (1)
  - PREGNANCY INDUCED HYPERTENSION [None]
